FAERS Safety Report 22654998 (Version 1)
Quarter: 2023Q2

REPORT INFORMATION
  Report Type: Spontaneous
  Country: US (occurrence: US)
  Receive Date: 20230629
  Receipt Date: 20230629
  Transmission Date: 20230721
  Serious: Yes (Hospitalization, Other)
  Sender: FDA-Public Use
  Company Number: US-BEH-2023160287

PATIENT
  Age: 66 Year
  Sex: Female

DRUGS (1)
  1. PRIVIGEN [Suspect]
     Active Substance: HUMAN IMMUNOGLOBULIN G
     Indication: Dermatomyositis
     Dosage: 65 GRAM, BIW
     Route: 042

REACTIONS (10)
  - Lower limb fracture [Unknown]
  - Feeling abnormal [Unknown]
  - Thrombosis [Unknown]
  - Fatigue [Unknown]
  - Chills [Unknown]
  - Pruritus [Unknown]
  - No adverse event [Unknown]
  - Product use in unapproved indication [Unknown]
  - Product dose omission in error [Unknown]
  - Intentional dose omission [Unknown]

NARRATIVE: CASE EVENT DATE: 20230301
